FAERS Safety Report 26206996 (Version 1)
Quarter: 2025Q4

REPORT INFORMATION
  Report Type: Spontaneous
  Country: US (occurrence: US)
  Receive Date: 20251229
  Receipt Date: 20251229
  Transmission Date: 20260117
  Serious: No
  Sender: GALDERMA
  Company Number: US-GALDERMA-US2025026100

PATIENT

DRUGS (2)
  1. NEMLUVIO [Suspect]
     Active Substance: NEMOLIZUMAB-ILTO
     Indication: Dermatitis atopic
     Route: 058
  2. NEMLUVIO [Suspect]
     Active Substance: NEMOLIZUMAB-ILTO
     Dosage: UNK
     Route: 058
     Dates: start: 20251119, end: 20251119

REACTIONS (5)
  - Urticaria [Recovering/Resolving]
  - Eye discharge [Recovering/Resolving]
  - Skin burning sensation [Recovering/Resolving]
  - Dermatitis atopic [Recovering/Resolving]
  - Drug ineffective [Recovering/Resolving]
